FAERS Safety Report 7378970-1 (Version None)
Quarter: 2011Q1

REPORT INFORMATION
  Report Type: 
  Country: None (occurrence: None)
  Receive Date: 20110328
  Receipt Date: 20110322
  Transmission Date: 20110831
  Serious: Yes (Hospitalization)
  Sender: FDA-Public Use
  Company Number: CHPA2011US04384

PATIENT
  Sex: Female
  Weight: 62.585 kg

DRUGS (3)
  1. DRUG THERAPY NOS [Concomitant]
     Indication: FAECES HARD
     Dosage: 1 DF, QD
     Route: 048
  2. BENEFIBER W/ WHEAT DEXTRIN [Suspect]
     Indication: LAXATIVE SUPPORTIVE CARE
     Dosage: UNK, TID
     Route: 048
  3. BENEFIBER W/ WHEAT DEXTRIN [Suspect]
     Indication: NUTRITIONAL SUPPORT

REACTIONS (2)
  - CARDIAC FAILURE CONGESTIVE [None]
  - OFF LABEL USE [None]
